FAERS Safety Report 4874892-6 (Version None)
Quarter: 2006Q1

REPORT INFORMATION
  Report Type: 
  Country: None (occurrence: None)
  Receive Date: 20060105
  Receipt Date: 20051229
  Transmission Date: 20060701
  Serious: Yes (Death)
  Sender: FDA-Public Use
  Company Number: USA-2005-0021300

PATIENT
  Age: 76 Year
  Sex: Male

DRUGS (2)
  1. MORPHINE SULFATE [Suspect]
  2. METOCLOPRAMIDE [Suspect]

REACTIONS (7)
  - CARDIOMYOPATHY [None]
  - GUILLAIN-BARRE SYNDROME [None]
  - INCORRECT DOSE ADMINISTERED [None]
  - OVERDOSE [None]
  - THERAPEUTIC AGENT TOXICITY [None]
  - TOXICOLOGIC TEST ABNORMAL [None]
  - VICTIM OF HOMICIDE [None]
